FAERS Safety Report 4556425-7 (Version None)
Quarter: 2005Q1

REPORT INFORMATION
  Report Type: 
  Country: None (occurrence: None)
  Receive Date: 20050114
  Receipt Date: 20050107
  Transmission Date: 20050727
  Serious: Yes (Other)
  Sender: FDA-Public Use
  Company Number: 2005007880

PATIENT
  Sex: Female
  Weight: 90.7194 kg

DRUGS (10)
  1. ZOLOFT [Suspect]
     Indication: SOCIAL PHOBIA
     Dosage: 100 MG (100 MG, 1 IN 1 D), ORAL
     Route: 048
  2. ATENOLOL [Concomitant]
  3. FEXOFENADINE HYDROCHLORIDE [Concomitant]
  4. POTASSIUM (POTASSIUM) [Concomitant]
  5. CHLOROTHIAZIDE [Concomitant]
  6. EZETIMIBE (EZETIMIBE) [Concomitant]
  7. FENOFIBRATE [Concomitant]
  8. ISOSORBIDE MONONITRATE [Concomitant]
  9. ASPIRIN [Concomitant]
  10. VITAMINS (VITAMINS) [Concomitant]

REACTIONS (6)
  - CORONARY ARTERY OCCLUSION [None]
  - DEPRESSION [None]
  - DIZZINESS [None]
  - FEELING JITTERY [None]
  - NERVOUSNESS [None]
  - TREATMENT NONCOMPLIANCE [None]
